FAERS Safety Report 13164527 (Version 1)
Quarter: 2017Q1

REPORT INFORMATION
  Report Type: Spontaneous
  Country: US (occurrence: US)
  Receive Date: 20170130
  Receipt Date: 20170130
  Transmission Date: 20170428
  Serious: No
  Sender: FDA-Public Use
  Company Number: US-ABBVIE-16P-163-1602571-00

PATIENT
  Sex: Male

DRUGS (4)
  1. FIRMAGON [Concomitant]
     Active Substance: DEGARELIX ACETATE
     Indication: PRODUCT USED FOR UNKNOWN INDICATION
  2. LUPRON DEPOT [Suspect]
     Active Substance: LEUPROLIDE ACETATE
     Indication: PRODUCT USED FOR UNKNOWN INDICATION
     Route: 065
     Dates: start: 201603
  3. ULTRAM [Concomitant]
     Active Substance: TRAMADOL HYDROCHLORIDE
     Indication: PRODUCT USED FOR UNKNOWN INDICATION
  4. XTANDI [Suspect]
     Active Substance: ENZALUTAMIDE
     Indication: PRODUCT USED FOR UNKNOWN INDICATION
     Route: 048
     Dates: start: 20160223

REACTIONS (6)
  - Fatigue [Unknown]
  - Dizziness [Recovering/Resolving]
  - Headache [Recovering/Resolving]
  - Myalgia [Unknown]
  - Feeling abnormal [Unknown]
  - Influenza like illness [Unknown]
